FAERS Safety Report 23181090 (Version 3)
Quarter: 2023Q4

REPORT INFORMATION
  Report Type: Spontaneous
  Country: TH (occurrence: TH)
  Receive Date: 20231114
  Receipt Date: 20231226
  Transmission Date: 20240110
  Serious: Yes (Death, Other)
  Sender: FDA-Public Use
  Company Number: TH-SA-SAC20231106001337

PATIENT
  Age: 81 Year
  Sex: Female
  Weight: 89 kg

DRUGS (2)
  1. ENOXAPARIN SODIUM [Suspect]
     Active Substance: ENOXAPARIN SODIUM
     Indication: Pulmonary embolism
     Dosage: 60 MG
     Route: 065
  2. ENOXAPARIN SODIUM [Suspect]
     Active Substance: ENOXAPARIN SODIUM
     Indication: Deep vein thrombosis
     Dosage: 0.6 ML, Q12H
     Route: 058
     Dates: start: 20231010

REACTIONS (3)
  - Retroperitoneal haemorrhage [Fatal]
  - Shock haemorrhagic [Fatal]
  - Creatinine renal clearance decreased [Unknown]

NARRATIVE: CASE EVENT DATE: 20231016
